FAERS Safety Report 17605858 (Version 1)
Quarter: 2020Q1

REPORT INFORMATION
  Report Type: Spontaneous
  Country: US (occurrence: US)
  Receive Date: 20200331
  Receipt Date: 20200331
  Transmission Date: 20200409
  Serious: No
  Sender: FDA-Public Use
  Company Number: US-PFIZER INC-2020132366

PATIENT
  Age: 57 Year
  Sex: Female

DRUGS (1)
  1. XELJANZ [Suspect]
     Active Substance: TOFACITINIB CITRATE
     Indication: RHEUMATOID ARTHRITIS
     Dosage: 2.5 MG, UNK [TAKES 1/2 OF A XELJANZ 5MG TABLET, ONCE OR TWICE A DAY]
     Route: 048
     Dates: start: 201902, end: 20200318

REACTIONS (9)
  - Stomatitis [Unknown]
  - Lymphadenopathy [Unknown]
  - Ear congestion [Unknown]
  - Oral pain [Unknown]
  - Product use issue [Unknown]
  - Paranasal sinus discomfort [Unknown]
  - Sinus congestion [Unknown]
  - Off label use [Unknown]
  - Headache [Unknown]

NARRATIVE: CASE EVENT DATE: 201902
